FAERS Safety Report 18042782 (Version 1)
Quarter: 2020Q3

REPORT INFORMATION
  Report Type: Spontaneous
  Country: AU (occurrence: AU)
  Receive Date: 20200720
  Receipt Date: 20200720
  Transmission Date: 20201103
  Serious: Yes (Hospitalization)
  Sender: FDA-Public Use
  Company Number: NVSC2020AU199291

PATIENT
  Age: 61 Year
  Sex: Male

DRUGS (3)
  1. DOXYCYCLINE. [Suspect]
     Active Substance: DOXYCYCLINE
     Indication: PNEUMONIA
     Dosage: UNK
     Route: 048
  2. GENTAMICIN. [Suspect]
     Active Substance: GENTAMICIN
     Indication: PNEUMONIA
     Dosage: UNK
     Route: 042
  3. CEFTRIAXONE. [Suspect]
     Active Substance: CEFTRIAXONE
     Indication: PNEUMONIA
     Dosage: UNK
     Route: 042

REACTIONS (5)
  - Hypoxia [Unknown]
  - Pneumonia [Unknown]
  - Hypotension [Unknown]
  - Product use in unapproved indication [Unknown]
  - Hyperlactacidaemia [Unknown]
